FAERS Safety Report 13805934 (Version 1)
Quarter: 2017Q3

REPORT INFORMATION
  Report Type: Spontaneous
  Country: US (occurrence: US)
  Receive Date: 20170728
  Receipt Date: 20170728
  Transmission Date: 20171127
  Serious: No
  Sender: FDA-Public Use
  Company Number: US-IGSA-GTI004562

PATIENT
  Age: 12 Year
  Sex: Male

DRUGS (15)
  1. CONCERTA [Concomitant]
     Active Substance: METHYLPHENIDATE HYDROCHLORIDE
     Dosage: 27 MG, QD
  2. LYSINE [Concomitant]
     Active Substance: LYSINE
     Dosage: 1000 MG, QD
  3. MIRALAX [Concomitant]
     Active Substance: POLYETHYLENE GLYCOL 3350
     Dosage: 2 UNKNOWN, PRN
  4. PROZAC [Concomitant]
     Active Substance: FLUOXETINE HYDROCHLORIDE
     Dosage: 10 MG, QD
  5. ZOFRAN [Concomitant]
     Active Substance: ONDANSETRON HYDROCHLORIDE
     Indication: NAUSEA
     Dosage: 4 MG, PRN
  6. TRAZODONE [Concomitant]
     Active Substance: TRAZODONE HYDROCHLORIDE
     Dosage: 50 MG, QD
  7. NORCO [Concomitant]
     Active Substance: ACETAMINOPHEN\HYDROCODONE BITARTRATE
     Indication: NEPHROLITHIASIS
     Dosage: UNK UNK, PRN
  8. PROAIR HFA [Concomitant]
     Active Substance: ALBUTEROL SULFATE
     Indication: ASTHMA
     Dosage: UNK UNK, PRN
  9. GAMUNEX-C [Suspect]
     Active Substance: HUMAN IMMUNOGLOBULIN G
     Indication: COMPLEMENT DEFICIENCY DISEASE
     Dosage: UNK
     Route: 042
     Dates: start: 201303
  10. CLONIDINE. [Concomitant]
     Active Substance: CLONIDINE
     Dosage: .3 MG, QD
  11. FLOVENT [Concomitant]
     Active Substance: FLUTICASONE PROPIONATE
     Indication: ASTHMA
     Dosage: UNK UNK, BID
  12. ZYRTEC [Concomitant]
     Active Substance: CETIRIZINE HYDROCHLORIDE
     Dosage: 10 MG, QD
  13. GAMUNEX-C [Suspect]
     Active Substance: HUMAN IMMUNOGLOBULIN G
     Indication: IMMUNODEFICIENCY
     Dosage: 28 G, Q.M.T.
     Route: 042
     Dates: start: 20160831
  14. RANITIDINE. [Concomitant]
     Active Substance: RANITIDINE
     Dosage: 75 MG, BID
  15. GAMUNEX-C [Suspect]
     Active Substance: HUMAN IMMUNOGLOBULIN G
     Indication: BLOOD IMMUNOGLOBULIN G DECREASED

REACTIONS (2)
  - Infusion site reaction [Recovering/Resolving]
  - Infusion site extravasation [Recovering/Resolving]

NARRATIVE: CASE EVENT DATE: 20160831
